FAERS Safety Report 23588036 (Version 2)
Quarter: 2024Q1

REPORT INFORMATION
  Report Type: Spontaneous
  Country: CA (occurrence: CA)
  Receive Date: 20240301
  Receipt Date: 20240311
  Transmission Date: 20240410
  Serious: Yes (Other)
  Sender: FDA-Public Use
  Company Number: CA-BEH-2023161670

PATIENT
  Age: 62 Year
  Sex: Male
  Weight: 105 kg

DRUGS (14)
  1. ALBUREX [Suspect]
     Active Substance: ALBUMIN HUMAN
     Indication: Blood volume expansion
     Dosage: 500 MILLILITER, OD (ONCE)
     Route: 042
     Dates: start: 20230713, end: 20230713
  2. ALBUREX [Suspect]
     Active Substance: ALBUMIN HUMAN
     Indication: Polyuria
  3. METOPROLOL [Concomitant]
     Active Substance: METOPROLOL
  4. ROSUVASTATIN [Concomitant]
     Active Substance: ROSUVASTATIN
  5. SODIUM CHLORIDE [Concomitant]
     Active Substance: SODIUM CHLORIDE
  6. ACETAMINOPHEN [Concomitant]
     Active Substance: ACETAMINOPHEN
  7. ACETAMINOPHEN\TRAMADOL [Concomitant]
     Active Substance: ACETAMINOPHEN\TRAMADOL
     Dosage: 1-2 TABLET
  8. METOCLOPRAMIDE [Concomitant]
     Active Substance: METOCLOPRAMIDE
  9. FUROSEMIDE [Concomitant]
     Active Substance: FUROSEMIDE
  10. SENNOSIDES [Concomitant]
     Active Substance: SENNOSIDES
  11. ONDANSETRON [Concomitant]
     Active Substance: ONDANSETRON
  12. RAMIPRIL [Concomitant]
     Active Substance: RAMIPRIL
  13. ZOPICLONE [Concomitant]
     Active Substance: ZOPICLONE
  14. TINZAPARIN [Concomitant]
     Active Substance: TINZAPARIN

REACTIONS (13)
  - Anaphylactic reaction [Recovered/Resolved]
  - Dyspnoea [Recovered/Resolved]
  - Throat irritation [Recovered/Resolved]
  - Swelling [Recovered/Resolved]
  - Swollen tongue [Recovered/Resolved]
  - Blood pressure fluctuation [Recovered/Resolved]
  - Paraesthesia oral [Recovered/Resolved]
  - Tongue pruritus [Recovered/Resolved]
  - Choking sensation [Recovered/Resolved]
  - Hypotension [Recovered/Resolved]
  - Lacrimation increased [Recovered/Resolved]
  - Ocular hyperaemia [Recovered/Resolved]
  - Hypoxia [Recovered/Resolved]

NARRATIVE: CASE EVENT DATE: 20230713
